FAERS Safety Report 4615960-3 (Version None)
Quarter: 2005Q1

REPORT INFORMATION
  Report Type: 
  Country: None (occurrence: None)
  Receive Date: 20050318
  Receipt Date: 20050309
  Transmission Date: 20050727
  Serious: Yes (Hospitalization, Disabling)
  Sender: FDA-Public Use
  Company Number: 200111054BVD

PATIENT
  Age: 61 Year
  Sex: Male
  Weight: 102 kg

DRUGS (7)
  1. LIPOBAY (CERIVASTATIN SODIUM) [Suspect]
     Indication: HYPERCHOLESTEROLAEMIA
     Dosage: 0.3 MG, TOTAL DAILY, ORAL
     Route: 048
     Dates: start: 20010328, end: 20010430
  2. ASPIRIN [Concomitant]
  3. PLAVIX [Concomitant]
  4. ALLOPURINOL [Concomitant]
  5. CONCOR [Concomitant]
  6. NORVASK [Concomitant]
  7. BLOPRESS [Concomitant]

REACTIONS (19)
  - AORTIC ANEURYSM [None]
  - C-REACTIVE PROTEIN INCREASED [None]
  - CONDITION AGGRAVATED [None]
  - EOSINOPHIL PERCENTAGE INCREASED [None]
  - EYE DISORDER [None]
  - FAT EMBOLISM [None]
  - FATIGUE [None]
  - HAEMODIALYSIS [None]
  - INFLAMMATION [None]
  - KIDNEY SMALL [None]
  - MEDICATION ERROR [None]
  - PAIN IN EXTREMITY [None]
  - RED BLOOD CELL SEDIMENTATION RATE INCREASED [None]
  - RENAL ATROPHY [None]
  - RENAL DISORDER [None]
  - RENAL FAILURE ACUTE [None]
  - RENAL FAILURE CHRONIC [None]
  - RHABDOMYOLYSIS [None]
  - SKIN DISCOLOURATION [None]
